FAERS Safety Report 22058769 (Version 1)
Quarter: 2023Q1

REPORT INFORMATION
  Report Type: Spontaneous
  Country: FR (occurrence: None)
  Receive Date: 20230303
  Receipt Date: 20230303
  Transmission Date: 20230417
  Serious: Yes (Hospitalization)
  Sender: FDA-Public Use
  Company Number: 2023A046319

PATIENT
  Age: 57 Year
  Sex: Male
  Weight: 71 kg

DRUGS (1)
  1. DAPAGLIFLOZIN [Suspect]
     Active Substance: DAPAGLIFLOZIN
     Indication: Cardiac failure
     Route: 048
     Dates: start: 20220211, end: 20230202

REACTIONS (1)
  - Metabolic acidosis [Recovering/Resolving]

NARRATIVE: CASE EVENT DATE: 20230202
